FAERS Safety Report 9664541 (Version 3)
Quarter: 2014Q2

REPORT INFORMATION
  Report Type: Report from Study
  Country: DE (occurrence: DE)
  Receive Date: 20131101
  Receipt Date: 20140410
  Transmission Date: 20141212
  Serious: Yes (Death, Hospitalization)
  Sender: FDA-Public Use
  Company Number: PHHY2013DE122995

PATIENT
  Sex: Female
  Weight: 51.7 kg

DRUGS (2)
  1. ICL670A [Suspect]
     Indication: MYELODYSPLASTIC SYNDROME
     Dosage: 1000 MG, DAILY
     Route: 048
     Dates: start: 20130716, end: 20130809
  2. ICL670A [Suspect]
     Indication: IRON OVERLOAD

REACTIONS (4)
  - Myelodysplastic syndrome [Fatal]
  - Paronychia [Recovered/Resolved]
  - Pyrexia [Recovered/Resolved]
  - Neutropenia [Recovered/Resolved]
